FAERS Safety Report 25802607 (Version 1)
Quarter: 2025Q3

REPORT INFORMATION
  Report Type: Spontaneous
  Country: BR (occurrence: BR)
  Receive Date: 20250915
  Receipt Date: 20250915
  Transmission Date: 20251020
  Serious: Yes (Death, Other)
  Sender: AMGEN
  Company Number: BR-AMGEN-BRASP2025179438

PATIENT
  Age: 65 Year
  Sex: Female

DRUGS (8)
  1. RITUXIMAB [Suspect]
     Active Substance: RITUXIMAB
     Indication: Diffuse large B-cell lymphoma
     Route: 065
     Dates: start: 202205, end: 202210
  2. RITUXIMAB [Suspect]
     Active Substance: RITUXIMAB
     Route: 065
     Dates: start: 2023
  3. CYCLOPHOSPHAMIDE [Concomitant]
     Active Substance: CYCLOPHOSPHAMIDE
     Dates: start: 202205
  4. DOXORUBICIN [Concomitant]
     Active Substance: DOXORUBICIN
     Dates: start: 202205
  5. VINCRISTINE [Concomitant]
     Active Substance: VINCRISTINE
     Dates: start: 202205
  6. PREDNISONE [Concomitant]
     Active Substance: PREDNISONE
  7. GEMCITABINE [Concomitant]
     Active Substance: GEMCITABINE
  8. OXALIPLATIN [Concomitant]
     Active Substance: OXALIPLATIN

REACTIONS (3)
  - Septic shock [Fatal]
  - Cutaneous B-cell lymphoma [Unknown]
  - Immunodeficiency [Unknown]

NARRATIVE: CASE EVENT DATE: 20230101
